FAERS Safety Report 15714085 (Version 1)
Quarter: 2018Q4

REPORT INFORMATION
  Report Type: Spontaneous
  Country: US (occurrence: US)
  Receive Date: 20181212
  Receipt Date: 20181212
  Transmission Date: 20190205
  Serious: No
  Sender: FDA-Public Use
  Company Number: US-009507513-1811USA009045

PATIENT
  Sex: Female

DRUGS (1)
  1. NEXPLANON [Suspect]
     Active Substance: ETONOGESTREL
     Indication: CONTRACEPTION
     Dosage: ONE ROD PER 3 YEARS
     Route: 059
     Dates: start: 20180927

REACTIONS (2)
  - Implant site rash [Unknown]
  - Implant site pruritus [Unknown]

NARRATIVE: CASE EVENT DATE: 2018
